FAERS Safety Report 13798136 (Version 1)
Quarter: 2017Q3

REPORT INFORMATION
  Report Type: Spontaneous
  Country: US (occurrence: US)
  Receive Date: 20170726
  Receipt Date: 20170726
  Transmission Date: 20171127
  Serious: Yes (Hospitalization, Disabling)
  Sender: FDA-Public Use
  Company Number: None

PATIENT
  Age: 27 Year
  Sex: Male
  Weight: 76.5 kg

DRUGS (4)
  1. ALPRAZOLAM. [Suspect]
     Active Substance: ALPRAZOLAM
     Indication: ANXIETY
     Dosage: ?          QUANTITY:5 TABLET(S);?
     Route: 048
  2. COLONAZEPAM [Suspect]
     Active Substance: CLONAZEPAM
     Dosage: ?          QUANTITY:1 TABLET(S);?
  3. ASHWAGANDA [Concomitant]
  4. VALERIAN [Concomitant]
     Active Substance: VALERIAN

REACTIONS (3)
  - General physical condition abnormal [None]
  - Withdrawal syndrome [None]
  - Mental disorder [None]
